FAERS Safety Report 5710296-1 (Version None)
Quarter: 2008Q2

REPORT INFORMATION
  Report Type: 
  Country: None (occurrence: None)
  Receive Date: 20080418
  Receipt Date: 20080411
  Transmission Date: 20081010
  Serious: Yes (Other)
  Sender: FDA-Public Use
  Company Number: GB-PFIZER INC-2008026146

PATIENT
  Sex: Male

DRUGS (3)
  1. LIPITOR [Suspect]
     Route: 048
  2. ASPIRIN [Suspect]
  3. STATINS [Concomitant]

REACTIONS (8)
  - BACK PAIN [None]
  - CARDIAC DISORDER [None]
  - CONTUSION [None]
  - DIARRHOEA [None]
  - FATIGUE [None]
  - FLATULENCE [None]
  - HYPOTENSION [None]
  - TRANSIENT ISCHAEMIC ATTACK [None]
